FAERS Safety Report 10744099 (Version 1)
Quarter: 2015Q1

REPORT INFORMATION
  Report Type: Spontaneous
  Country: CA (occurrence: CA)
  Receive Date: 20150128
  Receipt Date: 20150128
  Transmission Date: 20150721
  Serious: Yes (Life-Threatening, Other)
  Sender: FDA-Public Use
  Company Number: CA-ROCHE-1526457

PATIENT
  Sex: Male

DRUGS (6)
  1. CELLCEPT [Suspect]
     Active Substance: MYCOPHENOLATE MOFETIL\MYCOPHENOLATE MOFETIL HYDROCHLORIDE
     Indication: PRODUCT USED FOR UNKNOWN INDICATION
     Route: 065
  2. KEPPRA [Concomitant]
     Active Substance: LEVETIRACETAM
  3. FOLIC ACID. [Concomitant]
     Active Substance: FOLIC ACID
  4. TEGRETOL [Concomitant]
     Active Substance: CARBAMAZEPINE
  5. LACOSAMIDE [Concomitant]
     Active Substance: LACOSAMIDE
  6. PREDNISONE. [Concomitant]
     Active Substance: PREDNISONE

REACTIONS (5)
  - Paraneoplastic syndrome [Not Recovered/Not Resolved]
  - Memory impairment [Not Recovered/Not Resolved]
  - Pancreatic neoplasm [Recovered/Resolved]
  - Status epilepticus [Unknown]
  - Antibody test positive [Unknown]
